FAERS Safety Report 7784265-4 (Version None)
Quarter: 2011Q3

REPORT INFORMATION
  Report Type: 
  Country: None (occurrence: None)
  Receive Date: 20110928
  Receipt Date: 20110914
  Transmission Date: 20111222
  Serious: Yes (Hospitalization)
  Sender: FDA-Public Use
  Company Number: PHHO2011JP10348

PATIENT
  Sex: Male
  Weight: 74 kg

DRUGS (19)
  1. BLINDED ALISKIREN [Suspect]
     Indication: CARDIAC FAILURE
     Dosage: CODE NOT BROKEN
     Route: 048
     Dates: start: 20100929
  2. ALISKIREN [Suspect]
     Indication: CARDIAC FAILURE
     Dosage: UNK
     Route: 048
     Dates: start: 20100908
  3. ENALAPRIL MALEATE [Suspect]
     Indication: CARDIAC FAILURE
     Dosage: CODE NOT BROKEN
     Route: 048
     Dates: start: 20100929
  4. POSTERISAN [Concomitant]
     Indication: HAEMORRHOIDS
     Dosage: UNK
     Dates: start: 20081114
  5. BLINDED NO TREATMENT RECEIVED [Suspect]
     Indication: CARDIAC FAILURE
     Dosage: CODE NOT BROKEN
     Route: 048
     Dates: start: 20100929
  6. ENALAPRIL MALEATE [Suspect]
     Dosage: 20 MG, UNK
     Route: 048
     Dates: start: 20100817
  7. LANSOPRAZOLE [Concomitant]
     Indication: GASTRITIS PROPHYLAXIS
     Dosage: 15 MG, UNK
     Route: 048
     Dates: start: 20081004
  8. NOVORAPID [Concomitant]
     Indication: DIABETES MELLITUS
     Dosage: UNK
     Route: 058
     Dates: start: 20090915
  9. CRESTOR [Concomitant]
     Indication: HYPERLIPIDAEMIA
     Dosage: 2.5 MG, UNK
     Route: 048
     Dates: start: 20081004
  10. CARVEDILOL [Concomitant]
     Indication: RENAL FAILURE CHRONIC
     Dosage: 5.0 MG, UNK
     Route: 048
     Dates: start: 20081219
  11. ZOPICLONE [Concomitant]
     Indication: INSOMNIA
     Dosage: 3.75 MG, UNK
     Route: 048
     Dates: start: 20110315
  12. ASPIRIN [Concomitant]
     Indication: MYOCARDIAL INFARCTION
     Dosage: 10 MG, UNK
     Route: 048
     Dates: start: 20081004
  13. LASIX [Concomitant]
     Indication: RENAL FAILURE CHRONIC
     Dosage: 80 MG, UNK
     Route: 048
     Dates: start: 20090612
  14. MAGMITT KENEI [Concomitant]
     Indication: CONSTIPATION
     Dosage: 1500 MG, UNK
     Route: 048
     Dates: start: 20081004
  15. ALLOPURINOL [Concomitant]
     Indication: HYPERURICAEMIA
     Dosage: 100 MG, UNK
     Route: 048
     Dates: start: 20090520
  16. ENALAPRIL MALEATE [Suspect]
     Indication: CARDIAC FAILURE
     Dosage: 10 MG, UNK
     Route: 048
     Dates: start: 20100728
  17. PLAVIX [Concomitant]
     Indication: MYOCARDIAL INFARCTION
     Dosage: 75 MG, UNK
     Route: 048
     Dates: start: 20081004
  18. EPLERENONE [Concomitant]
     Indication: RENAL FAILURE CHRONIC
     Dosage: 50 MG, UNK
     Route: 048
     Dates: start: 20090612
  19. NOVOLIN N [Concomitant]
     Indication: DIABETES MELLITUS
     Dosage: UNK
     Route: 058
     Dates: start: 20090821

REACTIONS (3)
  - PULMONARY CONGESTION [None]
  - FLUID OVERLOAD [None]
  - CARDIAC FAILURE ACUTE [None]
